FAERS Safety Report 9650992 (Version 1)
Quarter: 2013Q4

REPORT INFORMATION
  Report Type: Report from Study
  Country: MX (occurrence: MX)
  Receive Date: 20131029
  Receipt Date: 20131029
  Transmission Date: 20140711
  Serious: Yes (Death, Other)
  Sender: FDA-Public Use
  Company Number: PHHY2013MX121663

PATIENT
  Age: 74 Year
  Sex: Male

DRUGS (1)
  1. EXFORGE HCT [Suspect]
     Indication: HYPERTENSION
     Dosage: 1 DF,(160 MG VALS/5 MG AMLO/ 12.5 MG HCTZ)
     Route: 048

REACTIONS (2)
  - Lung neoplasm malignant [Fatal]
  - Arrhythmia [Unknown]
